FAERS Safety Report 16269440 (Version 1)
Quarter: 2019Q2

REPORT INFORMATION
  Report Type: Spontaneous
  Country: US (occurrence: US)
  Receive Date: 20190502
  Receipt Date: 20190502
  Transmission Date: 20190711
  Serious: Yes (Life-Threatening, Hospitalization, Other)
  Sender: FDA-Public Use
  Company Number: None

PATIENT
  Age: 59 Year
  Sex: Male
  Weight: 89.6 kg

DRUGS (2)
  1. METHYLPREDNISOLONE. [Suspect]
     Active Substance: METHYLPREDNISOLONE
     Indication: BACK PAIN
     Dosage: ?          OTHER FREQUENCY:ONCE;?
     Route: 008
     Dates: start: 20190131, end: 20190131
  2. OMNIPAQUE [Suspect]
     Active Substance: IOHEXOL
     Dates: start: 20190131, end: 20190131

REACTIONS (5)
  - Suspected product contamination [None]
  - Central nervous system vasculitis [None]
  - Cerebral infarction [None]
  - Poor quality product administered [None]
  - Meningitis cryptococcal [None]

NARRATIVE: CASE EVENT DATE: 20190131
